FAERS Safety Report 10864413 (Version 1)
Quarter: 2015Q1

REPORT INFORMATION
  Report Type: Spontaneous
  Country: IN (occurrence: IN)
  Receive Date: 20150223
  Receipt Date: 20150223
  Transmission Date: 20150721
  Serious: Yes (Other)
  Sender: FDA-Public Use
  Company Number: IN-ABBVIE-15P-078-1351193-00

PATIENT

DRUGS (17)
  1. CLOZAPINE. [Suspect]
     Active Substance: CLOZAPINE
     Indication: PRODUCT USED FOR UNKNOWN INDICATION
     Route: 065
  2. AMISULPRIDE [Suspect]
     Active Substance: AMISULPRIDE
     Indication: PRODUCT USED FOR UNKNOWN INDICATION
     Route: 065
  3. TRIHEXYPHENIDYL HYDROCHLORIDE. [Suspect]
     Active Substance: TRIHEXYPHENIDYL HYDROCHLORIDE
     Indication: PRODUCT USED FOR UNKNOWN INDICATION
     Route: 065
  4. ESCITALOPRAM [Suspect]
     Active Substance: ESCITALOPRAM OXALATE
     Indication: PRODUCT USED FOR UNKNOWN INDICATION
     Route: 065
  5. DIVALPROEX SODIUM. [Suspect]
     Active Substance: DIVALPROEX SODIUM
     Indication: PRODUCT USED FOR UNKNOWN INDICATION
     Route: 065
  6. RISPERIDONE. [Suspect]
     Active Substance: RISPERIDONE
     Indication: PRODUCT USED FOR UNKNOWN INDICATION
     Route: 065
  7. CHLORPROMAZINE [Suspect]
     Active Substance: CHLORPROMAZINE
     Indication: PRODUCT USED FOR UNKNOWN INDICATION
     Route: 065
  8. ZUCLOPENTHIXOL DECANOATE [Suspect]
     Active Substance: ZUCLOPENTHIXOL DECANOATE
     Indication: PRODUCT USED FOR UNKNOWN INDICATION
     Route: 065
  9. FLUPHENAZINE DECANOATE. [Suspect]
     Active Substance: FLUPHENAZINE DECANOATE
     Indication: PRODUCT USED FOR UNKNOWN INDICATION
     Route: 065
  10. QUETIAPINE FUMARATE. [Suspect]
     Active Substance: QUETIAPINE FUMARATE
     Indication: PRODUCT USED FOR UNKNOWN INDICATION
     Route: 065
  11. ARIPIPRAZOLE. [Suspect]
     Active Substance: ARIPIPRAZOLE
     Indication: PRODUCT USED FOR UNKNOWN INDICATION
     Route: 065
  12. HALOPERIDOL. [Suspect]
     Active Substance: HALOPERIDOL
     Indication: PRODUCT USED FOR UNKNOWN INDICATION
     Route: 065
  13. OLANZAPINE. [Suspect]
     Active Substance: OLANZAPINE
     Indication: PRODUCT USED FOR UNKNOWN INDICATION
     Route: 065
  14. LORAZEPAM. [Suspect]
     Active Substance: LORAZEPAM
     Indication: PRODUCT USED FOR UNKNOWN INDICATION
     Route: 065
  15. TRIFLUOPERAZINE [Suspect]
     Active Substance: TRIFLUOPERAZINE\TRIFLUOPERAZINE HYDROCHLORIDE
     Indication: PRODUCT USED FOR UNKNOWN INDICATION
     Route: 065
  16. ASENAPINE [Suspect]
     Active Substance: ASENAPINE
     Indication: PRODUCT USED FOR UNKNOWN INDICATION
     Route: 065
  17. IMIPRAMINE [Suspect]
     Active Substance: IMIPRAMINE
     Indication: PRODUCT USED FOR UNKNOWN INDICATION
     Route: 065

REACTIONS (28)
  - Insomnia [Unknown]
  - Sedation [Unknown]
  - Dry mouth [Unknown]
  - Salivary hypersecretion [Unknown]
  - Parkinsonism [Unknown]
  - Seizure [Unknown]
  - Dizziness [Unknown]
  - Tremor [Unknown]
  - Vomiting [Unknown]
  - Orthostatic hypotension [Unknown]
  - Akathisia [Unknown]
  - Pyrexia [Unknown]
  - Weight increased [Unknown]
  - Nausea [Unknown]
  - Headache [Unknown]
  - Increased appetite [Unknown]
  - Fatigue [Unknown]
  - Hypotension [Unknown]
  - Constipation [Unknown]
  - Tachycardia [Unknown]
  - Somnolence [Unknown]
  - Anxiety [Unknown]
  - Diarrhoea [Unknown]
  - Agitation [Unknown]
  - Tardive dyskinesia [Unknown]
  - Gynaecomastia [Unknown]
  - Vision blurred [Unknown]
  - Dystonia [Unknown]
